FAERS Safety Report 4269042-3 (Version None)
Quarter: 2004Q1

REPORT INFORMATION
  Report Type: 
  Country: None (occurrence: None)
  Receive Date: 20040109
  Receipt Date: 20031230
  Transmission Date: 20041129
  Serious: Yes (Hospitalization)
  Sender: FDA-Public Use
  Company Number: US-JNJFOC-20030902829

PATIENT
  Age: 70 Year
  Sex: Male
  Weight: 59.4212 kg

DRUGS (5)
  1. DURAGESIC [Suspect]
     Indication: CANCER PAIN
     Dosage: 25 UG/HR, 1 IN 72 HOUR, TRANSDERMAL
     Route: 062
     Dates: start: 20030902, end: 20030903
  2. COUMADIN [Concomitant]
  3. MEGACE [Concomitant]
  4. ADVIL [Concomitant]
  5. CHEMOTHERAPY (ANTINEOPLASTIC AGENTS) [Concomitant]

REACTIONS (10)
  - ATRIAL FIBRILLATION [None]
  - COAGULATION TIME PROLONGED [None]
  - DIARRHOEA [None]
  - DIZZINESS [None]
  - HEPATIC FUNCTION ABNORMAL [None]
  - METASTASES TO LIVER [None]
  - NAUSEA [None]
  - ORTHOSTATIC HYPOTENSION [None]
  - VOMITING [None]
  - WEIGHT DECREASED [None]
